FAERS Safety Report 5501258-8 (Version None)
Quarter: 2007Q4

REPORT INFORMATION
  Report Type: 
  Country: None (occurrence: None)
  Receive Date: 20071029
  Receipt Date: 20071023
  Transmission Date: 20080405
  Serious: Yes (Hospitalization)
  Sender: FDA-Public Use
  Company Number: US-MERCK-0710USA04623

PATIENT
  Age: 64 Year
  Sex: Male

DRUGS (1)
  1. ZOCOR [Suspect]
     Indication: HYPERLIPIDAEMIA
     Route: 048
     Dates: start: 20040101

REACTIONS (4)
  - CHEST PAIN [None]
  - FATIGUE [None]
  - GASTROINTESTINAL DISORDER [None]
  - MUSCLE SPASMS [None]
